FAERS Safety Report 6539006-5 (Version None)
Quarter: 2010Q1

REPORT INFORMATION
  Report Type: 
  Country: None (occurrence: None)
  Receive Date: 20100113
  Receipt Date: 20100113
  Transmission Date: 20100710
  Serious: Yes (Hospitalization)
  Sender: FDA-Public Use
  Company Number: None

PATIENT
  Age: 12 Month
  Sex: Male
  Weight: 12 kg

DRUGS (2)
  1. AUGMENTIN [Suspect]
     Indication: EAR INFECTION
     Dosage: PO
     Route: 048
     Dates: start: 20091222, end: 20091228
  2. ZITHROMAX [Suspect]
     Dosage: PO
     Route: 048
     Dates: start: 20091228, end: 20091231

REACTIONS (4)
  - PRURITUS GENERALISED [None]
  - RASH ERYTHEMATOUS [None]
  - RASH GENERALISED [None]
  - URTICARIA [None]
